FAERS Safety Report 5528629-8 (Version None)
Quarter: 2007Q4

REPORT INFORMATION
  Report Type: 
  Country: None (occurrence: None)
  Receive Date: 20071119
  Receipt Date: 20070522
  Transmission Date: 20080405
  Serious: Yes (Hospitalization)
  Sender: FDA-Public Use
  Company Number: 2007BH004612

PATIENT
  Age: 54 Year
  Sex: Male

DRUGS (1)
  1. DURAMORPH PF [Suspect]
     Indication: PAIN
     Dosage: CONTINUOUS;INTH

REACTIONS (2)
  - DRUG WITHDRAWAL SYNDROME [None]
  - INTRAVENOUS CATHETER MANAGEMENT [None]
